FAERS Safety Report 18187172 (Version 4)
Quarter: 2021Q4

REPORT INFORMATION
  Report Type: Spontaneous
  Country: US (occurrence: US)
  Receive Date: 20200824
  Receipt Date: 20211210
  Transmission Date: 20220304
  Serious: No
  Sender: FDA-Public Use
  Company Number: US-PFIZER INC-2020321414

PATIENT
  Age: 12 Year
  Sex: Male

DRUGS (3)
  1. GENOTROPIN [Suspect]
     Active Substance: SOMATROPIN
     Dosage: 2 MG
     Dates: start: 2018
  2. GENOTROPIN [Suspect]
     Active Substance: SOMATROPIN
     Dosage: 1.4 MG, DAILY
     Dates: start: 20210621
  3. GENOTROPIN [Suspect]
     Active Substance: SOMATROPIN
     Dosage: 1.4 MG, DAILY
     Dates: start: 202110

REACTIONS (6)
  - Device use issue [Unknown]
  - Wrong technique in device usage process [Unknown]
  - Device leakage [Unknown]
  - Drug dose omission by device [Unknown]
  - Product storage error [Unknown]
  - Poor quality product administered [Unknown]
